FAERS Safety Report 10612952 (Version 1)
Quarter: 2014Q4

REPORT INFORMATION
  Report Type: Spontaneous
  Country: IL (occurrence: IL)
  Receive Date: 20141127
  Receipt Date: 20141127
  Transmission Date: 20150529
  Serious: Yes (Other)
  Sender: FDA-Public Use
  Company Number: IL-TAKEDA-2014TJP016151

PATIENT
  Age: 59 Year
  Sex: Male

DRUGS (6)
  1. LANTUS [Concomitant]
     Active Substance: INSULIN GLARGINE
     Dosage: UNK
     Route: 048
  2. ACTOS [Suspect]
     Active Substance: PIOGLITAZONE HYDROCHLORIDE
     Indication: DIABETES MELLITUS
     Dosage: 15 MG, QD
     Route: 048
  3. CILARIL [Concomitant]
     Dosage: UNK
     Route: 048
  4. GLUCOMIN [Concomitant]
     Dosage: UNK
     Route: 048
  5. VECTOR PLUS 160/25 [Concomitant]
     Dosage: 1 DOSAGE FORM = VALSARTAN 160 MG + HYDROCHLOROTHIAZIDE 25 MG, QD
     Route: 048
  6. VECTOR 160 [Concomitant]
     Dosage: UNK
     Route: 048

REACTIONS (3)
  - Anaemia [Recovering/Resolving]
  - Asthenia [Not Recovered/Not Resolved]
  - Weight increased [Not Recovered/Not Resolved]
